FAERS Safety Report 9247085 (Version 4)
Quarter: 2014Q1

REPORT INFORMATION
  Report Type: Spontaneous
  Country: US (occurrence: US)
  Receive Date: 20130423
  Receipt Date: 20140107
  Transmission Date: 20141002
  Serious: No
  Sender: FDA-Public Use
  Company Number: US-BIOGENIDEC-2013BI034796

PATIENT
  Age: 32 Year
  Sex: Male

DRUGS (2)
  1. AVONEX [Suspect]
     Indication: MULTIPLE SCLEROSIS
     Route: 030
     Dates: start: 20130404, end: 20131019
  2. ADVIL [Concomitant]
     Indication: PRODUCT USED FOR UNKNOWN INDICATION

REACTIONS (9)
  - Tremor [Recovered/Resolved]
  - Gastric disorder [Not Recovered/Not Resolved]
  - General symptom [Not Recovered/Not Resolved]
  - Fall [Recovered/Resolved]
  - Diarrhoea [Recovered/Resolved with Sequelae]
  - Influenza like illness [Not Recovered/Not Resolved]
  - Vomiting [Recovered/Resolved]
  - Pain [Not Recovered/Not Resolved]
  - Chills [Recovered/Resolved]
